FAERS Safety Report 8748240 (Version 2)
Quarter: 2015Q2

REPORT INFORMATION
  Report Type: Report from Study
  Country: US (occurrence: US)
  Receive Date: 20120827
  Receipt Date: 20150624
  Transmission Date: 20150821
  Serious: Yes (Other)
  Sender: FDA-Public Use
  Company Number: US-ROCHE-1099224

PATIENT
  Sex: Male

DRUGS (14)
  1. TARCEVA [Suspect]
     Active Substance: ERLOTINIB HYDROCHLORIDE
     Indication: RENAL CANCER
     Route: 065
  2. TARCEVA [Suspect]
     Active Substance: ERLOTINIB HYDROCHLORIDE
     Indication: MALIGNANT URINARY TRACT NEOPLASM
  3. PROTONIX (UNITED STATES) [Concomitant]
     Route: 065
  4. NORVASC [Concomitant]
     Active Substance: AMLODIPINE BESYLATE
     Indication: BLOOD PRESSURE
  5. AVASTIN [Suspect]
     Active Substance: BEVACIZUMAB
     Indication: RENAL CANCER
     Route: 042
     Dates: start: 20060911
  6. LOTREL [Concomitant]
     Active Substance: AMLODIPINE BESYLATE\BENAZEPRIL HYDROCHLORIDE
     Dosage: 20/5 MG
     Route: 065
  7. BENADRYL [Concomitant]
     Active Substance: DIPHENHYDRAMINE HYDROCHLORIDE
     Route: 048
  8. AMBIEN [Concomitant]
     Active Substance: ZOLPIDEM TARTRATE
     Indication: SLEEP DISORDER
  9. ASPIRIN. [Concomitant]
     Active Substance: ASPIRIN
     Route: 065
  10. PEROXIDE [Concomitant]
     Active Substance: HYDROGEN PEROXIDE
     Indication: RASH
  11. LEVAQUIN [Concomitant]
     Active Substance: LEVOFLOXACIN
     Route: 065
  12. ARANESP [Concomitant]
     Active Substance: DARBEPOETIN ALFA
     Indication: RENAL FAILURE
     Route: 065
  13. AVASTIN [Suspect]
     Active Substance: BEVACIZUMAB
     Indication: MALIGNANT URINARY TRACT NEOPLASM
  14. TYLENOL [Concomitant]
     Active Substance: ACETAMINOPHEN
     Route: 048

REACTIONS (22)
  - Disease progression [Unknown]
  - Drug resistance [Unknown]
  - Weight increased [Unknown]
  - Off label use [Unknown]
  - Abdominal discomfort [Unknown]
  - Nausea [Unknown]
  - Appetite disorder [Unknown]
  - Muscle spasms [Unknown]
  - Diarrhoea [Unknown]
  - Insomnia [Unknown]
  - Pyrexia [Recovered/Resolved]
  - Feeling cold [Unknown]
  - Rash [Unknown]
  - Fatigue [Unknown]
  - Muscular weakness [Unknown]
  - Proteinuria [Unknown]
  - Dyspnoea [Unknown]
  - Vomiting [Unknown]
  - Cerebrovascular accident [Unknown]
  - Joint stiffness [Unknown]
  - Dizziness [Unknown]
  - Dry skin [Unknown]
